FAERS Safety Report 11538363 (Version 2)
Quarter: 2015Q4

REPORT INFORMATION
  Report Type: Report from Study
  Country: AU (occurrence: AU)
  Receive Date: 20150922
  Receipt Date: 20151002
  Transmission Date: 20160304
  Serious: No
  Sender: FDA-Public Use
  Company Number: AU-ABBVIE-15P-008-1465421-00

PATIENT
  Age: 66 Year
  Sex: Male

DRUGS (1)
  1. LUCRIN [Suspect]
     Active Substance: LEUPROLIDE ACETATE
     Indication: PROSTATE CANCER
     Route: 030
     Dates: start: 20140717

REACTIONS (4)
  - Ligament sprain [Unknown]
  - Groin pain [Recovering/Resolving]
  - Muscle strain [Unknown]
  - Transient global amnesia [Recovered/Resolved with Sequelae]

NARRATIVE: CASE EVENT DATE: 20150814
